FAERS Safety Report 21157724 (Version 1)
Quarter: 2022Q3

REPORT INFORMATION
  Report Type: Spontaneous
  Country: US (occurrence: None)
  Receive Date: 20220731
  Receipt Date: 20220731
  Transmission Date: 20221026
  Serious: Yes (Hospitalization, Disabling)
  Sender: FDA-Public Use
  Company Number: None

PATIENT
  Sex: Male

DRUGS (1)
  1. ACCUTANE [Suspect]
     Active Substance: ISOTRETINOIN
     Indication: Acne
     Dates: start: 20090901, end: 20100301

REACTIONS (6)
  - Gastrointestinal disorder [None]
  - Anxiety [None]
  - Depression [None]
  - Suicidal ideation [None]
  - Insomnia [None]
  - Depressed level of consciousness [None]
